FAERS Safety Report 17930326 (Version 1)
Quarter: 2020Q2

REPORT INFORMATION
  Report Type: Spontaneous
  Country: CN (occurrence: CN)
  Receive Date: 20200623
  Receipt Date: 20200623
  Transmission Date: 20200714
  Serious: Yes (Hospitalization, Other)
  Sender: FDA-Public Use
  Company Number: CN-ASTRAZENECA-2020SE77777

PATIENT
  Age: 10846 Day
  Sex: Female
  Weight: 52 kg

DRUGS (7)
  1. LITHIUM CARBONATE. [Concomitant]
     Active Substance: LITHIUM CARBONATE
  2. SEROQUEL [Suspect]
     Active Substance: QUETIAPINE FUMARATE
     Indication: AFFECTIVE DISORDER
     Route: 048
  3. ANYUN [Suspect]
     Active Substance: ZALEPLON
     Indication: SLEEP DISORDER THERAPY
     Route: 048
  4. SEROQUEL [Suspect]
     Active Substance: QUETIAPINE FUMARATE
     Indication: AFFECTIVE DISORDER
     Route: 048
  5. SEROQUEL [Suspect]
     Active Substance: QUETIAPINE FUMARATE
     Indication: AFFECTIVE DISORDER
     Route: 048
     Dates: start: 20200527, end: 20200601
  6. LITHIUM CARBONATE. [Concomitant]
     Active Substance: LITHIUM CARBONATE
  7. ANYUN [Suspect]
     Active Substance: ZALEPLON
     Indication: SLEEP DISORDER THERAPY
     Route: 048
     Dates: start: 20200524, end: 20200601

REACTIONS (6)
  - Band neutrophil count increased [Recovering/Resolving]
  - Rash pruritic [Recovering/Resolving]
  - Drug-induced liver injury [Unknown]
  - Alanine aminotransferase increased [Recovering/Resolving]
  - Chills [Unknown]
  - Pyrexia [Recovering/Resolving]

NARRATIVE: CASE EVENT DATE: 20200531
